FAERS Safety Report 6244260-3 (Version None)
Quarter: 2009Q2

REPORT INFORMATION
  Report Type: 
  Country: None (occurrence: None)
  Receive Date: 20090619
  Receipt Date: 20090120
  Transmission Date: 20091009
  Serious: Yes (Hospitalization)
  Sender: FDA-Public Use
  Company Number: 2009PL000088

PATIENT
  Age: 27 Year
  Sex: Female
  Weight: 60 kg

DRUGS (6)
  1. AZATHIOPRINE [Suspect]
     Indication: CROHN'S DISEASE
     Dosage: 100 MG;PO
     Route: 048
     Dates: start: 20050928, end: 20060104
  2. PLACEBO (PLACEBO) LYOPHILIZED POWDER (NO PREF. NAME) [Suspect]
     Indication: CROHN'S DISEASE
     Dosage: 5 MG;KG;QD;IV
     Route: 042
     Dates: start: 20050928, end: 20060104
  3. PENTASA [Concomitant]
  4. LOSEC /00661201/ [Concomitant]
  5. CO-DAFALGAN [Concomitant]
  6. ENTOCORT EC [Concomitant]

REACTIONS (1)
  - ERYSIPELAS [None]
